FAERS Safety Report 5630092-3 (Version None)
Quarter: 2008Q1

REPORT INFORMATION
  Report Type: 
  Country: None (occurrence: None)
  Receive Date: 20080218
  Receipt Date: 20080205
  Transmission Date: 20080703
  Serious: Yes (Other)
  Sender: FDA-Public Use
  Company Number: PHBS2008CN01758

PATIENT
  Sex: Female

DRUGS (2)
  1. SEBIVO [Suspect]
     Dosage: 600 MG, QD
     Route: 048
  2. INTERFERON [Concomitant]

REACTIONS (3)
  - BLOOD CREATINE PHOSPHOKINASE INCREASED [None]
  - HYPOAESTHESIA [None]
  - PAIN [None]
